FAERS Safety Report 23995155 (Version 1)
Quarter: 2024Q2

REPORT INFORMATION
  Report Type: Spontaneous
  Country: US (occurrence: None)
  Receive Date: 20240619
  Receipt Date: 20240619
  Transmission Date: 20240715
  Serious: Yes (Hospitalization)
  Sender: FDA-Public Use
  Company Number: None

PATIENT
  Sex: Female

DRUGS (1)
  1. GAMMAGARD LIQUID [Suspect]
     Active Substance: HUMAN IMMUNOGLOBULIN G
     Indication: Multiple sclerosis
     Dosage: 50GM EVERY 4 WEEKS IV
     Route: 042
     Dates: start: 202112

REACTIONS (5)
  - Dyspnoea [None]
  - Fatigue [None]
  - Peripheral swelling [None]
  - Decreased appetite [None]
  - Urine output decreased [None]
